FAERS Safety Report 5781462-4 (Version None)
Quarter: 2008Q2

REPORT INFORMATION
  Report Type: 
  Country: None (occurrence: None)
  Receive Date: 20080623
  Receipt Date: 20080612
  Transmission Date: 20081010
  Serious: No
  Sender: FDA-Public Use
  Company Number: US-ROCHE-570367

PATIENT
  Sex: Female

DRUGS (2)
  1. ISOTRETINOIN [Suspect]
     Indication: DRUG USE FOR UNKNOWN INDICATION
     Dosage: DISPENSED ACCUTANE 40 MG CAPS ON 24 MAY 07 AND 9 JULY 07 AND ACCUTANE 10 MG CAPS ON 9 JULY 07.
     Route: 065
  2. CONTRACEPTIVE [Concomitant]

REACTIONS (1)
  - ABORTION INDUCED [None]
